FAERS Safety Report 7965757-1 (Version None)
Quarter: 2011Q4

REPORT INFORMATION
  Report Type: 
  Country: None (occurrence: None)
  Receive Date: 20111208
  Receipt Date: 20111205
  Transmission Date: 20120403
  Serious: Yes (Hospitalization, Other)
  Sender: FDA-Public Use
  Company Number: AR-JNJFOC-20110805230

PATIENT
  Sex: Female
  Weight: 65 kg

DRUGS (5)
  1. GOLIMUMAB [Suspect]
     Route: 042
  2. GOLIMUMAB [Suspect]
     Indication: RHEUMATOID ARTHRITIS
     Route: 042
     Dates: start: 20100927, end: 20110606
  3. CALCIO CIT PLUS [Concomitant]
     Indication: PROPHYLAXIS
     Route: 048
  4. FOLIC ACID [Concomitant]
     Indication: PROPHYLAXIS
     Route: 048
  5. MEPREDNISONE [Concomitant]
     Indication: RHEUMATOID ARTHRITIS
     Route: 048

REACTIONS (1)
  - IIIRD NERVE PARESIS [None]
